FAERS Safety Report 5105195-2 (Version None)
Quarter: 2006Q3

REPORT INFORMATION
  Report Type: 
  Country: None (occurrence: None)
  Receive Date: 20060911
  Receipt Date: 20060828
  Transmission Date: 20061208
  Serious: Yes (Other)
  Sender: FDA-Public Use
  Company Number: 2006106187

PATIENT
  Age: 85 Year
  Sex: Female
  Weight: 72.5755 kg

DRUGS (11)
  1. LYRICA [Suspect]
     Indication: POST HERPETIC NEURALGIA
     Dosage: 75 MG (75 MG,1 IN 1 D)
     Dates: start: 20060101, end: 20060825
  2. SYNTHROID [Concomitant]
  3. TRENTAL [Concomitant]
  4. NORVASC [Concomitant]
  5. ELAVIL [Concomitant]
  6. TOPROL-XL [Concomitant]
  7. TRICOR [Concomitant]
  8. CYANOCOBALAMIN [Concomitant]
  9. VYTORIN [Concomitant]
  10. COZAAR [Concomitant]
  11. IBUPROFEN [Concomitant]

REACTIONS (9)
  - BACK INJURY [None]
  - DISORIENTATION [None]
  - DIZZINESS [None]
  - DRUG INEFFECTIVE [None]
  - FALL [None]
  - MUSCLE STRAIN [None]
  - NERVE COMPRESSION [None]
  - SOMNOLENCE [None]
  - VISION BLURRED [None]
